FAERS Safety Report 4389532-2 (Version None)
Quarter: 2004Q2

REPORT INFORMATION
  Report Type: 
  Country: None (occurrence: None)
  Receive Date: 20040628
  Receipt Date: 20040617
  Transmission Date: 20050107
  Serious: No
  Sender: FDA-Public Use
  Company Number: 04H-114-0264238-00

PATIENT
  Sex: 0

DRUGS (3)
  1. LEUCOVORIN CALCIUM [Suspect]
     Indication: CHEMOTHERAPY
     Dosage: 20 MG/M2, ONCE, INTRAVENOUS
     Route: 042
  2. FLUOROURACIL [Suspect]
     Indication: CHEMOTHERAPY
     Dosage: 425 MG/M2, ONCE, INTRAVENOUS; DAY 1-5 EVERY 4 HOURS - 6 COURSES
     Route: 042
  3. SODIUM CHLORIDE INJ [Concomitant]

REACTIONS (1)
  - LEUKOPENIA [None]
